FAERS Safety Report 14258855 (Version 3)
Quarter: 2017Q4

REPORT INFORMATION
  Report Type: Spontaneous
  Country: US (occurrence: US)
  Receive Date: 20171207
  Receipt Date: 20171221
  Transmission Date: 20180321
  Serious: Yes (Hospitalization)
  Sender: FDA-Public Use
  Company Number: US-VIFOR (INTERNATIONAL) INC.-VIT-2017-13036

PATIENT
  Age: 68 Year
  Sex: Female

DRUGS (25)
  1. LEFLUNOMIDE. [Concomitant]
     Active Substance: LEFLUNOMIDE
  2. PROCTOFOAM HC [Concomitant]
     Active Substance: HYDROCORTISONE ACETATE\PRAMOXINE HYDROCHLORIDE
  3. REMERON [Concomitant]
     Active Substance: MIRTAZAPINE
  4. VOLTAREN [Concomitant]
     Active Substance: DICLOFENAC SODIUM
  5. VELTASSA [Suspect]
     Active Substance: PATIROMER
     Indication: END STAGE RENAL DISEASE
     Route: 048
     Dates: start: 20170926, end: 2017
  6. NO DRUG NAME [Concomitant]
  7. NORCO [Concomitant]
     Active Substance: ACETAMINOPHEN\HYDROCODONE BITARTRATE
  8. PREDNISONE. [Concomitant]
     Active Substance: PREDNISONE
  9. PERPHENAZINE. [Concomitant]
     Active Substance: PERPHENAZINE
  10. RENVELA [Concomitant]
     Active Substance: SEVELAMER CARBONATE
  11. TESSALON [Concomitant]
     Active Substance: BENZONATATE
  12. TYLENOL [Concomitant]
     Active Substance: ACETAMINOPHEN
  13. XANAX [Concomitant]
     Active Substance: ALPRAZOLAM
  14. MIDODRINE HYDROCHLORIDE. [Concomitant]
     Active Substance: MIDODRINE HYDROCHLORIDE
  15. ONDANSETRON [Concomitant]
     Active Substance: ONDANSETRON
  16. SYSTANE CONTACTS [Concomitant]
     Active Substance: DEXTRAN\HYPROMELLOSES
  17. CLARITIN [Concomitant]
     Active Substance: LORATADINE
  18. DULOXETINE HYDROCHLORIDE. [Concomitant]
     Active Substance: DULOXETINE HYDROCHLORIDE
  19. MAGNESIUM HYDROXIDE. [Concomitant]
     Active Substance: MAGNESIUM HYDROXIDE
  20. SYNTHROID [Concomitant]
     Active Substance: LEVOTHYROXINE SODIUM
  21. ACETYLSALICYLIC ACID [Concomitant]
     Active Substance: ASPIRIN
  22. DEPAKOTE [Concomitant]
     Active Substance: DIVALPROEX SODIUM
  23. NEURONTIN [Concomitant]
     Active Substance: GABAPENTIN
  24. PROSOURCE PLUS [Concomitant]
  25. SENSIPAR [Concomitant]
     Active Substance: CINACALCET HYDROCHLORIDE

REACTIONS (4)
  - Fluid overload [Unknown]
  - Pneumonia [Unknown]
  - Respiratory disorder [Unknown]
  - Off label use [Unknown]

NARRATIVE: CASE EVENT DATE: 2017
